FAERS Safety Report 16593990 (Version 2)
Quarter: 2019Q3

REPORT INFORMATION
  Report Type: Report from Study
  Country: US (occurrence: US)
  Receive Date: 20190718
  Receipt Date: 20190926
  Transmission Date: 20191004
  Serious: Yes (Other)
  Sender: FDA-Public Use
  Company Number: US-ASTELLAS-2018US050103

PATIENT
  Age: 74 Year
  Sex: Male

DRUGS (4)
  1. ENZALUTAMIDE [Suspect]
     Active Substance: ENZALUTAMIDE
     Indication: PROSTATE CANCER
     Route: 048
     Dates: start: 20180516
  2. LUPRON [Suspect]
     Active Substance: LEUPROLIDE ACETATE
     Indication: HORMONE REPLACEMENT THERAPY
     Dosage: UNK UNK, EVERY 3 MONTHS
     Route: 065
  3. LEVOTHYROXINE                      /00068002/ [Concomitant]
     Active Substance: LEVOTHYROXINE
     Indication: HYPOTHYROIDISM
     Dosage: UNK UNK, UNKNOWN FREQ.
     Route: 065
  4. ZOMETA [Concomitant]
     Active Substance: ZOLEDRONIC ACID
     Indication: PRODUCT USED FOR UNKNOWN INDICATION
     Dosage: UNK UNK, UNKNOWN FREQ.
     Route: 065

REACTIONS (6)
  - Stomatitis [Recovered/Resolved]
  - Type 2 diabetes mellitus [Recovering/Resolving]
  - Flatulence [Recovering/Resolving]
  - Weight decreased [Recovering/Resolving]
  - Taste disorder [Recovered/Resolved]
  - Hot flush [Not Recovered/Not Resolved]

NARRATIVE: CASE EVENT DATE: 20181030
